FAERS Safety Report 22058165 (Version 2)
Quarter: 2023Q1

REPORT INFORMATION
  Report Type: Spontaneous
  Country: US (occurrence: US)
  Receive Date: 20230303
  Receipt Date: 20230329
  Transmission Date: 20230417
  Serious: Yes (Other)
  Sender: FDA-Public Use
  Company Number: US-Blueprint Medicines Corporation-914

PATIENT
  Sex: Female

DRUGS (2)
  1. AYVAKIT [Suspect]
     Active Substance: AVAPRITINIB
     Indication: Gastrointestinal carcinoma
     Route: 065
     Dates: start: 20220826
  2. AYVAKIT [Suspect]
     Active Substance: AVAPRITINIB
     Indication: Gastrointestinal stromal tumour

REACTIONS (5)
  - Dementia [Unknown]
  - Memory impairment [Unknown]
  - Cognitive disorder [Unknown]
  - Blood potassium decreased [Unknown]
  - Urinary tract infection [Unknown]
